FAERS Safety Report 6460578-3 (Version None)
Quarter: 2009Q4

REPORT INFORMATION
  Report Type: 
  Country: None (occurrence: None)
  Receive Date: 20091130
  Receipt Date: 20091117
  Transmission Date: 20100525
  Serious: Yes (Hospitalization, Other)
  Sender: FDA-Public Use
  Company Number: CN-WYE-G04396709

PATIENT
  Sex: Male
  Weight: 55 kg

DRUGS (1)
  1. MOROCTOCOG ALFA AF OSA [Suspect]
     Indication: FACTOR VIII DEFICIENCY
     Dosage: 50IU/KG (+_5IU/KG) PER TIME, ON DEMAND
     Route: 040
     Dates: start: 20090302

REACTIONS (2)
  - FACTOR VIII INHIBITION [None]
  - GINGIVAL BLEEDING [None]
